FAERS Safety Report 4520401-0 (Version None)
Quarter: 2004Q4

REPORT INFORMATION
  Report Type: 
  Country: None (occurrence: None)
  Receive Date: 20041203
  Receipt Date: 20041122
  Transmission Date: 20050328
  Serious: Yes (Hospitalization)
  Sender: FDA-Public Use
  Company Number: 2003156414DE

PATIENT
  Age: 62 Year
  Sex: Male

DRUGS (6)
  1. SOMATROPIN POWDER, STERILE (SOMATROPIN) [Suspect]
     Indication: HYPOPITUITARISM
     Dosage: 0.3 MG, SUBCUTANEOUS; 0.2 MG, SUBCUTANEOUS
     Route: 058
     Dates: start: 20000126, end: 20020227
  2. SOMATROPIN POWDER, STERILE (SOMATROPIN) [Suspect]
     Indication: HYPOPITUITARISM
     Dosage: 0.3 MG, SUBCUTANEOUS; 0.2 MG, SUBCUTANEOUS
     Route: 058
     Dates: start: 20030117, end: 20030701
  3. HYDROCORTISONE [Concomitant]
  4. TESTOSTERONE [Concomitant]
  5. LEVOTHYROXINE SODIUM [Concomitant]
  6. DESMOPRESSIN ACETATE (DESMOPRESSIN ACETATE) [Concomitant]

REACTIONS (2)
  - CONDITION AGGRAVATED [None]
  - NEOPLASM MALIGNANT [None]
